FAERS Safety Report 15050672 (Version 2)
Quarter: 2019Q2

REPORT INFORMATION
  Report Type: Spontaneous
  Country: US (occurrence: US)
  Receive Date: 20180622
  Receipt Date: 20190411
  Transmission Date: 20190711
  Serious: Yes (Life-Threatening, Other)
  Sender: FDA-Public Use
  Company Number: US-BAYER-2018-113122

PATIENT
  Age: 58 Year
  Sex: Female

DRUGS (8)
  1. MENINGOCOCCAL C VACCINE [Concomitant]
  2. ECULIZUMAB [Concomitant]
     Active Substance: ECULIZUMAB
  3. TICAGRELOR. [Concomitant]
     Active Substance: TICAGRELOR
     Indication: ANTIPLATELET THERAPY
  4. ACETYLSALICYLIC ACID({=100 MG) [Suspect]
     Active Substance: ASPIRIN
     Indication: ANTIPLATELET THERAPY
  5. CLOPIDOGREL [Interacting]
     Active Substance: CLOPIDOGREL BISULFATE
     Indication: ANTIPLATELET THERAPY
     Dosage: UNK
  6. HEPARIN [Interacting]
     Active Substance: HEPARIN SODIUM
     Route: 042
  7. COUMADIN [Concomitant]
     Active Substance: WARFARIN SODIUM
  8. AMOXICILLIN. [Concomitant]
     Active Substance: AMOXICILLIN
     Indication: PROPHYLAXIS

REACTIONS (7)
  - Splenic thrombosis [None]
  - Pulmonary thrombosis [None]
  - Cerebral thrombosis [None]
  - Hepatic vein thrombosis [None]
  - Haemorrhage intracranial [None]
  - Vascular stent thrombosis [None]
  - Labelled drug-drug interaction medication error [None]
